FAERS Safety Report 18692061 (Version 1)
Quarter: 2021Q1

REPORT INFORMATION
  Report Type: Report from Study
  Country: CO (occurrence: CO)
  Receive Date: 20210102
  Receipt Date: 20210102
  Transmission Date: 20210419
  Serious: Yes (Hospitalization, Other)
  Sender: FDA-Public Use
  Company Number: NVSC2020CO236458

PATIENT
  Sex: Male
  Weight: 84 kg

DRUGS (3)
  1. METFORMIN [Suspect]
     Active Substance: METFORMIN HYDROCHLORIDE
     Indication: DIABETES MELLITUS
     Dosage: 850 MG, QD
     Route: 048
  2. REVOLADE [Suspect]
     Active Substance: ELTROMBOPAG OLAMINE
     Indication: IMMUNE THROMBOCYTOPENIA
     Dosage: 25 MG, QD
     Route: 048
  3. REVOLADE [Suspect]
     Active Substance: ELTROMBOPAG OLAMINE
     Dosage: 50 MG, QD
     Route: 048

REACTIONS (14)
  - Splenomegaly [Unknown]
  - Varices oesophageal [Unknown]
  - Liver injury [Unknown]
  - Haematochezia [Unknown]
  - Vein rupture [Unknown]
  - Portal hypertension [Unknown]
  - Oesophageal varices haemorrhage [Unknown]
  - Venous injury [Unknown]
  - Infection [Unknown]
  - Inappropriate schedule of product administration [Unknown]
  - Immune system disorder [Unknown]
  - Liver disorder [Unknown]
  - Hepatic cirrhosis [Unknown]
  - Platelet count decreased [Unknown]
